FAERS Safety Report 21784918 (Version 1)
Quarter: 2022Q4

REPORT INFORMATION
  Report Type: Report from Study
  Country: US (occurrence: US)
  Receive Date: 20221227
  Receipt Date: 20221227
  Transmission Date: 20230112
  Serious: No
  Sender: FDA-Public Use
  Company Number: US-ABBVIE-4200305

PATIENT
  Sex: Female

DRUGS (2)
  1. HUMIRA [Suspect]
     Active Substance: ADALIMUMAB
     Indication: Product used for unknown indication
     Route: 058
  2. Cephalosporn [Concomitant]
     Indication: Product used for unknown indication

REACTIONS (5)
  - Gastric disorder [Unknown]
  - Vaginal haemorrhage [Unknown]
  - Oropharyngeal pain [Unknown]
  - Cellulitis [Unknown]
  - Musculoskeletal stiffness [Unknown]
